FAERS Safety Report 5835626-1 (Version None)
Quarter: 2008Q3

REPORT INFORMATION
  Report Type: 
  Country: None (occurrence: None)
  Receive Date: 20080806
  Receipt Date: 20080805
  Transmission Date: 20090109
  Serious: Yes (Hospitalization)
  Sender: FDA-Public Use
  Company Number: PHHO1999GB05505

PATIENT
  Sex: Male

DRUGS (2)
  1. RAD 666 RAD+ [Suspect]
     Dosage: 2 MG, BID
     Route: 048
     Dates: start: 19990601, end: 19991021
  2. NEORAL [Suspect]
     Route: 048
     Dates: start: 19990601

REACTIONS (2)
  - NEPHROPATHY TOXIC [None]
  - RENAL IMPAIRMENT [None]
